FAERS Safety Report 9160359 (Version 1)
Quarter: 2013Q1

REPORT INFORMATION
  Report Type: Report from Study
  Country: FR (occurrence: FR)
  Receive Date: 20130313
  Receipt Date: 20130313
  Transmission Date: 20140127
  Serious: Yes (Death)
  Sender: FDA-Public Use
  Company Number: FR-ROCHE-GNE286765

PATIENT
  Age: 49 Year
  Sex: Male

DRUGS (2)
  1. RITUXIMAB [Suspect]
     Indication: B-CELL LYMPHOMA RECURRENT
     Dosage: 375 MG/M2, UNK
     Route: 042
     Dates: start: 20070919, end: 20071011
  2. RITUXIMAB [Suspect]
     Dosage: 688 MG/ML, UNK
     Route: 042
     Dates: start: 20071011, end: 20071011

REACTIONS (1)
  - Bronchopulmonary aspergillosis [Fatal]
